FAERS Safety Report 6981839-5 (Version None)
Quarter: 2010Q3

REPORT INFORMATION
  Report Type: 
  Country: None (occurrence: None)
  Receive Date: 20100914
  Receipt Date: 20091202
  Transmission Date: 20110219
  Serious: No
  Sender: FDA-Public Use
  Company Number: US-PFIZER INC-2009267059

PATIENT
  Sex: Female
  Weight: 58.957 kg

DRUGS (7)
  1. LYRICA [Suspect]
     Indication: MULTIPLE SCLEROSIS
     Dosage: 75MG TO 100MG IN THE MORNING AND 300MG TO 375MG AT NIGHT
  2. LYRICA [Suspect]
     Indication: NEUROPATHY PERIPHERAL
     Dosage: 100 MG, UNK
     Dates: start: 20080101
  3. LYRICA [Suspect]
     Dosage: 200 MG, UNK
  4. LYRICA [Suspect]
     Dosage: 400 MG, UNK
  5. CYMBALTA [Concomitant]
  6. LUNESTA [Concomitant]
  7. TYSABRI [Concomitant]
     Route: 042

REACTIONS (1)
  - WEIGHT INCREASED [None]
